FAERS Safety Report 4399166-1 (Version None)
Quarter: 2004Q3

REPORT INFORMATION
  Report Type: 
  Country: None (occurrence: None)
  Receive Date: 20040715
  Receipt Date: 20040715
  Transmission Date: 20050211
  Serious: Yes (Death)
  Sender: FDA-Public Use
  Company Number: None

PATIENT
  Sex: Male

DRUGS (1)
  1. CANDESARTAN [Suspect]
     Indication: HYPERTENSION
     Dosage: 16 MG DAILY ORAL
     Route: 048
     Dates: start: 20020101, end: 20040712

REACTIONS (7)
  - HYPOTENSION [None]
  - ILEUS [None]
  - METABOLIC ACIDOSIS [None]
  - PANCREATITIS ACUTE [None]
  - RENAL FAILURE [None]
  - SEPSIS [None]
  - VENTRICULAR FIBRILLATION [None]
